FAERS Safety Report 20967693 (Version 1)
Quarter: 2022Q2

REPORT INFORMATION
  Report Type: Spontaneous
  Country: FR (occurrence: FR)
  Receive Date: 20220616
  Receipt Date: 20220616
  Transmission Date: 20220721
  Serious: Yes (Other)
  Sender: FDA-Public Use
  Company Number: None

PATIENT
  Age: 70 Year
  Sex: Female
  Weight: 56 kg

DRUGS (8)
  1. LINEZOLID [Suspect]
     Active Substance: LINEZOLID
     Indication: Septic shock
     Dosage: UNIT DOSE : 1.2 GRAM, DURATION : 8 DAYS
     Route: 041
     Dates: start: 20220505, end: 20220513
  2. NOREPINEPHRINE [Suspect]
     Active Substance: NOREPINEPHRINE
     Indication: Septic shock
     Dosage: UNIT DOSE : 4 MG , DURATION : 1 DAYS
     Route: 041
     Dates: start: 20220506, end: 20220507
  3. AMIKACIN [Suspect]
     Active Substance: AMIKACIN
     Indication: Septic shock
     Dosage: UNIT DOSE : 1740 MG , DURATION 1 DAYS
     Route: 041
     Dates: start: 20220506, end: 20220507
  4. PROPOFOL LIPURO [Suspect]
     Active Substance: PROPOFOL
     Indication: Septic shock
     Dosage: UNIT DOSE : 1200 MG , DURATION : 1 DAYS
     Route: 041
     Dates: start: 20220506, end: 20220507
  5. METRONIDAZOLE [Suspect]
     Active Substance: METRONIDAZOLE
     Indication: Septic shock
     Dosage: FORM STRENGTH : 0.5 PERCENT , UNIT DOSE : 1.5 GRAM  , DURATION : 3 DAYS
     Route: 041
     Dates: start: 20220505, end: 20220508
  6. CEFEPIME [Suspect]
     Active Substance: CEFEPIME HYDROCHLORIDE
     Indication: Septic shock
     Dosage: UNIT DOSE : 6 GRAM , DURATION : 8 DAYS
     Route: 041
     Dates: start: 20220505, end: 20220513
  7. PIPERACILLIN AND TAZOBACTAM [Suspect]
     Active Substance: PIPERACILLIN SODIUM\TAZOBACTAM SODIUM
     Indication: Febrile bone marrow aplasia
     Dosage: NOT SPECIFIED, DURATION : 2 DAYS
     Route: 041
     Dates: start: 20220423, end: 20220425
  8. CASPOFUNGIN ACETATE [Suspect]
     Active Substance: CASPOFUNGIN ACETATE
     Indication: Septic shock
     Dosage: UNIT DOSE : 50 MG , DURATION : 3 DAYS
     Route: 041
     Dates: start: 20220505, end: 20220508

REACTIONS (1)
  - Rash maculo-papular [Recovered/Resolved]

NARRATIVE: CASE EVENT DATE: 20220508
